FAERS Safety Report 9721514 (Version 1)
Quarter: 2013Q4

REPORT INFORMATION
  Report Type: Spontaneous
  Country: US (occurrence: US)
  Receive Date: 20131130
  Receipt Date: 20131130
  Transmission Date: 20140711
  Serious: Yes (Death)
  Sender: FDA-Public Use
  Company Number: US-INDICUS PHARMA-000137

PATIENT
  Age: 53 Year
  Sex: Female

DRUGS (5)
  1. METHADONE [Suspect]
     Route: 048
  2. AMITRIPTYLINE [Suspect]
     Route: 048
  3. CLONAZEPAM [Suspect]
  4. METFORMIN HYDROCHLORIDE [Suspect]
  5. BUPROPION [Suspect]
     Route: 048

REACTIONS (3)
  - Completed suicide [Fatal]
  - Cardio-respiratory arrest [Fatal]
  - Exposure via ingestion [Fatal]
